FAERS Safety Report 6971059-2 (Version None)
Quarter: 2010Q3

REPORT INFORMATION
  Report Type: 
  Country: None (occurrence: None)
  Receive Date: 20100908
  Receipt Date: 20100827
  Transmission Date: 20110219
  Serious: Yes (Hospitalization, Other)
  Sender: FDA-Public Use
  Company Number: US-PFIZER INC-2010078338

PATIENT
  Sex: Female

DRUGS (4)
  1. CHANTIX [Suspect]
     Indication: SMOKING CESSATION THERAPY
     Dosage: 1 MG, 1X/DAY
     Dates: start: 20071201, end: 20080628
  2. CELEBREX [Concomitant]
     Indication: OSTEOARTHRITIS
     Dosage: 200 MG
     Dates: start: 20020101
  3. WELLBUTRIN SR [Concomitant]
     Dosage: UNK
     Dates: start: 20010101, end: 20080628
  4. QUININE [Concomitant]
     Indication: MUSCLE SPASMS
     Dosage: 325 MG
     Dates: start: 19750101

REACTIONS (4)
  - CONVULSION [None]
  - DEPRESSION [None]
  - OVERDOSE [None]
  - SUICIDE ATTEMPT [None]
